FAERS Safety Report 8896938 (Version 1)
Quarter: 2012Q4

REPORT INFORMATION
  Report Type: 
  Country: US (occurrence: US)
  Receive Date: 20121108
  Receipt Date: 20121108
  Transmission Date: 20130627
  Serious: Yes (Hospitalization)
  Sender: FDA-Public Use
  Company Number: US-AMGEN-USASP2012023964

PATIENT
  Age: 14 Year
  Sex: Female
  Weight: 47 kg

DRUGS (4)
  1. ENBREL [Suspect]
     Indication: JUVENILE ARTHRITIS
     Dosage: 25 mg, 2 times/wk
     Route: 058
     Dates: start: 200901, end: 201103
  2. PLAQUENIL                          /00072602/ [Concomitant]
     Dosage: 1 mg, UNK
  3. METHOTREXATE [Concomitant]
     Indication: POLYARTHRITIS
     Dosage: 15 mg, qwk
     Route: 058
     Dates: start: 200812
  4. CELLCEPT                           /01275102/ [Concomitant]
     Dosage: 750 milligram 1-1-Morning and 1000 milligram 1-1-Evening
     Dates: start: 201108

REACTIONS (9)
  - Lupus-like syndrome [Not Recovered/Not Resolved]
  - Proteinuria [Recovering/Resolving]
  - Red blood cell sedimentation rate increased [Not Recovered/Not Resolved]
  - Glomerulonephritis [Not Recovered/Not Resolved]
  - Urine protein/creatinine ratio abnormal [Unknown]
  - Haematuria [Recovering/Resolving]
  - Lupus nephritis [Recovering/Resolving]
  - Antineutrophil cytoplasmic antibody positive [Recovered/Resolved]
  - Lymphadenopathy [Not Recovered/Not Resolved]
